FAERS Safety Report 13747359 (Version 1)
Quarter: 2017Q3

REPORT INFORMATION
  Report Type: Spontaneous
  Country: US (occurrence: US)
  Receive Date: 20170712
  Receipt Date: 20170712
  Transmission Date: 20171127
  Serious: Yes (Hospitalization, Other)
  Sender: FDA-Public Use
  Company Number: US-BAYER-2017-129539

PATIENT
  Age: 68 Year
  Sex: Female
  Weight: 67.98 kg

DRUGS (2)
  1. XANAX [Concomitant]
     Active Substance: ALPRAZOLAM
     Dosage: UNK
  2. MIRALAX [Suspect]
     Active Substance: POLYETHYLENE GLYCOL 3350
     Indication: GASTROINTESTINAL DISORDER
     Dosage: 1 UNK, PRN 1 DOSE AS NEEDED DOSE
     Route: 048

REACTIONS (19)
  - Shock [Recovered/Resolved]
  - Hepatitis [Recovered/Resolved]
  - Renal disorder [Not Recovered/Not Resolved]
  - Gastric disorder [Recovered/Resolved]
  - Urinary tract infection [Recovered/Resolved]
  - Anaphylactic shock [Unknown]
  - Obstructive airways disorder [Recovered/Resolved]
  - Gastrointestinal disorder [Recovered/Resolved]
  - Pain [Recovered/Resolved]
  - Swelling [Recovered/Resolved]
  - Discoloured vomit [Recovered/Resolved]
  - Vomiting [Recovered/Resolved]
  - Abnormal faeces [Recovered/Resolved]
  - Pollakiuria [Recovered/Resolved]
  - Presyncope [Recovered/Resolved]
  - Dyspnoea [Recovered/Resolved]
  - Dysuria [Recovered/Resolved]
  - Nausea [Recovered/Resolved]
  - Muscle spasms [Recovered/Resolved]

NARRATIVE: CASE EVENT DATE: 20170606
